FAERS Safety Report 10201189 (Version 2)
Quarter: 2014Q2

REPORT INFORMATION
  Report Type: Spontaneous
  Country: US (occurrence: US)
  Receive Date: 20140528
  Receipt Date: 20140606
  Transmission Date: 20141212
  Serious: No
  Sender: FDA-Public Use
  Company Number: US-PFIZER INC-2014140343

PATIENT
  Sex: Male

DRUGS (5)
  1. GLIPIZIDE [Suspect]
     Dosage: UNK
  2. GLIPIZIDE [Suspect]
     Dosage: 10 MG, 2X/DAY
  3. JANUMET [Suspect]
     Dosage: UNK
  4. JANUMET [Suspect]
     Dosage: [1000MG]/[50MG], 2X/DAY
  5. VICTOZA [Suspect]
     Dosage: 1.2 MG, UNK

REACTIONS (1)
  - Glycosylated haemoglobin increased [Unknown]
